FAERS Safety Report 21737661 (Version 1)
Quarter: 2022Q4

REPORT INFORMATION
  Report Type: Spontaneous
  Country: GB (occurrence: GB)
  Receive Date: 20221216
  Receipt Date: 20221216
  Transmission Date: 20230113
  Serious: Yes (Hospitalization, Other)
  Sender: FDA-Public Use
  Company Number: GB-SA-2019SA170318

PATIENT
  Age: 81 Year
  Sex: Male

DRUGS (9)
  1. NEBIVOLOL [Suspect]
     Active Substance: NEBIVOLOL
     Indication: Product used for unknown indication
     Dosage: UNK
     Route: 065
  2. DUPILUMAB [Suspect]
     Active Substance: DUPILUMAB
     Indication: Dermatitis atopic
     Dosage: 300 MILLIGRAM (Q4W) (WEEK)
     Route: 058
     Dates: start: 201902
  3. CETRABEN EMOLLIENT BATH ADDITIVE [Concomitant]
     Indication: Product used for unknown indication
     Dosage: UNK UNK, TWO TIMES A DAY
     Route: 061
  4. BETAMETHASONE VALERATE\FUSIDIC ACID [Concomitant]
     Active Substance: BETAMETHASONE VALERATE\FUSIDIC ACID
     Indication: Product used for unknown indication
     Dosage: UNK UNK, TWO TIMES A DAY
     Route: 061
  5. LANSOPRAZOLE [Concomitant]
     Active Substance: LANSOPRAZOLE
     Indication: Product used for unknown indication
     Dosage: 30 MILLIGRAM, ONCE A DAY
     Route: 048
  6. LEVOTHYROXINE [Concomitant]
     Active Substance: LEVOTHYROXINE
     Indication: Product used for unknown indication
     Dosage: 25 MICROGRAM, ONCE A DAY
     Route: 048
  7. LEVOTHYROXINE [Concomitant]
     Active Substance: LEVOTHYROXINE
     Dosage: 100 MICROGRAM, ONCE A DAY
     Route: 048
  8. Sodium hyaluronate huons [Concomitant]
     Indication: Product used for unknown indication
     Dosage: 1 GTT DROPS, ONCE A DAY (0.15% WITH TREHALOSE 3% EYE DROPS: 1 DROP; 0.2 %: 1 DROP)
     Route: 047
     Dates: start: 2020
  9. TICAGRELOR [Concomitant]
     Active Substance: TICAGRELOR
     Indication: Product used for unknown indication
     Dosage: 90 MILLIGRAM, TWO TIMES A DAY
     Route: 048

REACTIONS (22)
  - Myocardial infarction [Unknown]
  - Loss of consciousness [Unknown]
  - Malaise [Unknown]
  - Bradycardia [Unknown]
  - Cold sweat [Unknown]
  - Chest pain [Unknown]
  - Troponin increased [Unknown]
  - Dizziness [Unknown]
  - Syncope [Unknown]
  - Suicidal ideation [Unknown]
  - Oedema peripheral [Unknown]
  - Hypotension [Unknown]
  - Feeling abnormal [Unknown]
  - Blood uric acid increased [Unknown]
  - Pruritus [Unknown]
  - Nausea [Unknown]
  - Scratch [Not Recovered/Not Resolved]
  - Eye disorder [Unknown]
  - Rash macular [Not Recovered/Not Resolved]
  - Constipation [Unknown]
  - Back pain [Unknown]
  - Product use issue [Unknown]

NARRATIVE: CASE EVENT DATE: 20190101
